FAERS Safety Report 4725882-5 (Version None)
Quarter: 2005Q3

REPORT INFORMATION
  Report Type: 
  Country: None (occurrence: None)
  Receive Date: 20050722
  Receipt Date: 20050722
  Transmission Date: 20060218
  Serious: Yes (Other)
  Sender: FDA-Public Use
  Company Number: None

PATIENT
  Age: 38 Year
  Sex: Male
  Weight: 67.1324 kg

DRUGS (9)
  1. LEVOXYL [Suspect]
     Indication: BASEDOW'S DISEASE
     Dosage: ONE PO Q MON/FRI;
     Route: 048
     Dates: end: 20050410
  2. LEVOXYL [Suspect]
     Indication: RADIOACTIVE IODINE THERAPY
     Dosage: ONE PO Q MON/FRI;
     Route: 048
     Dates: end: 20050410
  3. LEVOXYL [Suspect]
     Indication: HYPOTHYROIDISM
     Dosage: ONE PO Q OTHER DAY;  (TU W TH SAT SUN)
     Route: 048
     Dates: end: 20050410
  4. ATIVAN [Concomitant]
  5. PREVACID [Concomitant]
  6. DARVOCET-N 100 [Concomitant]
  7. TRAZADONE [Concomitant]
  8. TRAMADOL [Concomitant]
  9. IBUPROFEN [Concomitant]

REACTIONS (5)
  - ANXIETY [None]
  - NERVOUSNESS [None]
  - PANIC ATTACK [None]
  - PHARMACEUTICAL PRODUCT COMPLAINT [None]
  - TREMOR [None]
